FAERS Safety Report 15176775 (Version 2)
Quarter: 2018Q3

REPORT INFORMATION
  Report Type: Report from Study
  Country: TR (occurrence: TR)
  Receive Date: 20180720
  Receipt Date: 20180725
  Transmission Date: 20181010
  Serious: Yes (Death, Congenital Anomaly)
  Sender: FDA-Public Use
  Company Number: TR-PFIZER INC-2018295306

PATIENT
  Sex: Male

DRUGS (7)
  1. PANTOPRAZOLE [Suspect]
     Active Substance: PANTOPRAZOLE
     Dosage: UNK
     Route: 064
  2. TRIMEBUTINE [Suspect]
     Active Substance: TRIMEBUTINE
     Dosage: UNK
     Route: 064
  3. SODIUM ALGINATE [Suspect]
     Active Substance: SODIUM ALGINATE
     Indication: ANTACID THERAPY
     Dosage: UNK
     Route: 064
  4. CALCIUM CARBONATE. [Suspect]
     Active Substance: CALCIUM CARBONATE
     Indication: ANTACID THERAPY
     Dosage: UNK
     Route: 064
  5. MAGNESIUM CARBONATE [Suspect]
     Active Substance: MAGNESIUM CARBONATE
     Indication: ANTACID THERAPY
     Dosage: UNK
     Route: 064
  6. BETAHISTINE [Suspect]
     Active Substance: BETAHISTINE
     Dosage: 48 MG, QD (48 MG/DAY FOR 3 DAYS AT 10TH WEEK)
     Route: 064
  7. PIRACETAM [Suspect]
     Active Substance: PIRACETAM
     Dosage: UNK
     Route: 064

REACTIONS (1)
  - Intestinal malrotation [Fatal]
